FAERS Safety Report 5472084-3 (Version None)
Quarter: 2007Q3

REPORT INFORMATION
  Report Type: 
  Country: None (occurrence: None)
  Receive Date: 20070928
  Receipt Date: 20070920
  Transmission Date: 20080115
  Serious: Yes (Other)
  Sender: FDA-Public Use
  Company Number: BR-PFIZER INC-2007079563

PATIENT
  Sex: Female
  Weight: 65 kg

DRUGS (1)
  1. CELEBRA [Suspect]
     Indication: BONE PAIN
     Route: 048
     Dates: start: 20070918, end: 20070919

REACTIONS (3)
  - HYPERSENSITIVITY [None]
  - PARAESTHESIA [None]
  - THROAT IRRITATION [None]
